FAERS Safety Report 6441204-6 (Version None)
Quarter: 2009Q4

REPORT INFORMATION
  Report Type: 
  Country: None (occurrence: None)
  Receive Date: 20091116
  Receipt Date: 20091105
  Transmission Date: 20100525
  Serious: Yes (Hospitalization)
  Sender: FDA-Public Use
  Company Number: DE-PFIZER INC-2009294240

PATIENT
  Age: 80 Year
  Sex: Female

DRUGS (5)
  1. ALDACTONE [Suspect]
  2. RAMIPRIL [Suspect]
  3. CARVEDILOL [Suspect]
  4. TORASEMIDE [Suspect]
  5. INSULIN [Suspect]

REACTIONS (3)
  - ATRIOVENTRICULAR BLOCK COMPLETE [None]
  - HYPERKALAEMIA [None]
  - SYNCOPE [None]
